FAERS Safety Report 10372636 (Version 1)
Quarter: 2014Q3

REPORT INFORMATION
  Report Type: Spontaneous
  Country: TR (occurrence: TR)
  Receive Date: 20140808
  Receipt Date: 20140808
  Transmission Date: 20150326
  Serious: Yes (Hospitalization)
  Sender: FDA-Public Use
  Company Number: PHHY2014TR093128

PATIENT
  Age: 30 Year
  Sex: Female

DRUGS (5)
  1. METOPROLOL [Suspect]
     Active Substance: METOPROLOL
     Dosage: 50 MG, PER DAY
  2. METOPROLOL [Suspect]
     Active Substance: METOPROLOL
     Dosage: 5 MG, UNK
     Route: 042
  3. ADENOSINE. [Suspect]
     Active Substance: ADENOSINE
     Dosage: 6 MG,
     Route: 042
  4. AMIODARONE [Suspect]
     Active Substance: AMIODARONE
     Dosage: 150 MG, UNK
     Route: 042
  5. ADENOSINE. [Suspect]
     Active Substance: ADENOSINE
     Dosage: 12 MG,
     Route: 042

REACTIONS (7)
  - Vomiting [Unknown]
  - Blood pressure decreased [Unknown]
  - Cardiomyopathy [Recovered/Resolved]
  - Palpitations [Unknown]
  - Ventricular tachycardia [Recovered/Resolved]
  - Maternal exposure during pregnancy [Unknown]
  - Dizziness [Unknown]
